FAERS Safety Report 4703453-4 (Version None)
Quarter: 2005Q2

REPORT INFORMATION
  Report Type: 
  Country: None (occurrence: None)
  Receive Date: 20050629
  Receipt Date: 20050609
  Transmission Date: 20051028
  Serious: Yes (Other)
  Sender: FDA-Public Use
  Company Number: USA0506100163

PATIENT
  Age: 55 Year
  Sex: Female

DRUGS (4)
  1. GEMZAR [Suspect]
     Indication: BREAST CANCER METASTATIC
     Dosage: 1690 MG
  2. HERCEPTIN [Concomitant]
  3. FASLODEX [Concomitant]
  4. ZOMETA [Concomitant]

REACTIONS (3)
  - CREATININE RENAL CLEARANCE INCREASED [None]
  - CYSTITIS [None]
  - VAGINAL BURNING SENSATION [None]
